FAERS Safety Report 8875654 (Version 1)
Quarter: 2012Q4

REPORT INFORMATION
  Report Type: 
  Country: US (occurrence: US)
  Receive Date: 20121030
  Receipt Date: 20121030
  Transmission Date: 20130627
  Serious: Yes (Other)
  Sender: FDA-Public Use
  Company Number: CHPA2012US022224

PATIENT
  Age: 71 Year
  Sex: Female

DRUGS (6)
  1. TRIAMINIC COLD AND ALLERGY [Suspect]
     Indication: PNEUMONIA PRIMARY ATYPICAL
     Dosage: 1 TSP, TID, PRN
     Route: 048
  2. TRIAMINIC COLD AND ALLERGY [Suspect]
     Dosage: 7 TSP, UNK
  3. ALLERGY MEDICATION [Concomitant]
     Dosage: 1 PILL, ONCE/SINGLE
  4. COD-LIVER OIL [Concomitant]
     Dosage: 1 DF, QD
     Dates: start: 1941
  5. COQ10 [Concomitant]
     Dosage: 100 mg, ONCE DAILY
     Dates: start: 2009
  6. VITAMIN C [Concomitant]
     Dosage: 1 DF, 1 TIME PER WEEK

REACTIONS (10)
  - Pneumonia [Recovered/Resolved]
  - Atypical pneumonia [Recovered/Resolved]
  - Breast cancer [Recovered/Resolved]
  - Hypertension [Not Recovered/Not Resolved]
  - Lymphoedema [Not Recovered/Not Resolved]
  - Oedema peripheral [Not Recovered/Not Resolved]
  - Scar [Not Recovered/Not Resolved]
  - Aphagia [Recovered/Resolved]
  - Insomnia [Recovered/Resolved]
  - Off label use [Unknown]
